FAERS Safety Report 8826709 (Version 13)
Quarter: 2017Q1

REPORT INFORMATION
  Report Type: Spontaneous
  Country: US (occurrence: US)
  Receive Date: 20121005
  Receipt Date: 20170307
  Transmission Date: 20170429
  Serious: Yes (Hospitalization, Other)
  Sender: FDA-Public Use
  Company Number: US-GLAXOSMITHKLINE-A0909980A

PATIENT
  Age: 43 Year
  Sex: Female
  Weight: 91 kg

DRUGS (22)
  1. METOLAZONE. [Concomitant]
     Active Substance: METOLAZONE
  2. POTASSIUM CL [Concomitant]
     Active Substance: POTASSIUM CHLORIDE
     Dosage: 20 DF, UNK
  3. FLOLAN [Suspect]
     Active Substance: EPOPROSTENOL SODIUM
     Dosage: 50 NG/KG/MIN CONTINUOUSLY
     Route: 042
  4. CELEXA [Concomitant]
     Active Substance: CITALOPRAM HYDROBROMIDE
     Dosage: 40 MG, U
  5. SPIRONOLACTONE. [Concomitant]
     Active Substance: SPIRONOLACTONE
  6. FLOLAN [Suspect]
     Active Substance: EPOPROSTENOL SODIUM
     Indication: PULMONARY ARTERIAL HYPERTENSION
     Dosage: CONTINUOUS, VIAL STRENGTH 1.5 MG.FU- 50 NG/KG/MIN CONTINUOUSLY (CONCENTRATION OF 75,000 NG/ML A[...]
     Route: 042
     Dates: start: 20061023
  7. FLOLAN [Suspect]
     Active Substance: EPOPROSTENOL SODIUM
     Dosage: UNK
     Dates: start: 20061023
  8. FLOLAN [Suspect]
     Active Substance: EPOPROSTENOL SODIUM
     Dosage: 50 NG/KG/MIN
     Route: 042
  9. TRACLEER [Concomitant]
     Active Substance: BOSENTAN
  10. FLOLAN [Suspect]
     Active Substance: EPOPROSTENOL SODIUM
     Dosage: 50 NG/KG/MIN CONTINUOUS, CONC OF 75,000 NG/ML, PUMP RATE 81ML/DAY, 1.5 MG VIAL STRENGT
     Route: 042
  11. FLOLAN [Suspect]
     Active Substance: EPOPROSTENOL SODIUM
     Indication: PULMONARY ARTERIAL HYPERTENSION
     Route: 042
  12. NEURONTIN [Concomitant]
     Active Substance: GABAPENTIN
  13. FLOLAN [Suspect]
     Active Substance: EPOPROSTENOL SODIUM
     Dosage: UNK
     Dates: start: 20061023
  14. REVATIO [Concomitant]
     Active Substance: SILDENAFIL CITRATE
  15. FLOLAN [Suspect]
     Active Substance: EPOPROSTENOL SODIUM
     Dosage: 50 NG/KG/MIN, CO
     Route: 042
  16. DIGOXIN. [Concomitant]
     Active Substance: DIGOXIN
     Dosage: 125 ?G, U
  17. LASIX [Concomitant]
     Active Substance: FUROSEMIDE
  18. WARFARIN [Concomitant]
     Active Substance: WARFARIN
  19. FLOLAN [Suspect]
     Active Substance: EPOPROSTENOL SODIUM
     Dosage: UNK
     Dates: start: 20061023
  20. FLOLAN [Suspect]
     Active Substance: EPOPROSTENOL SODIUM
     Dosage: UNK
  21. METFORMIN HCL [Concomitant]
     Active Substance: METFORMIN HYDROCHLORIDE
  22. SPIRIVA [Concomitant]
     Active Substance: TIOTROPIUM BROMIDE MONOHYDRATE
     Dosage: 18 ?G, UNK

REACTIONS (19)
  - Pneumonia [Not Recovered/Not Resolved]
  - Pancreatitis [Unknown]
  - Catheter site swelling [Unknown]
  - Influenza [Unknown]
  - Pharyngitis streptococcal [Unknown]
  - Pyrexia [Unknown]
  - Dyspnoea [Unknown]
  - Hospitalisation [Unknown]
  - Diabetes mellitus [Unknown]
  - Device related infection [Unknown]
  - Oxygen saturation [Unknown]
  - Dental care [Unknown]
  - Upper respiratory tract infection [Unknown]
  - Catheter site erythema [Unknown]
  - Catheter site pain [Unknown]
  - Bronchitis [Unknown]
  - Gastrointestinal haemorrhage [Unknown]
  - Lymphadenopathy [Unknown]
  - Urticaria [Unknown]

NARRATIVE: CASE EVENT DATE: 20120924
